FAERS Safety Report 15433777 (Version 1)
Quarter: 2018Q3

REPORT INFORMATION
  Report Type: Spontaneous
  Country: IT (occurrence: IT)
  Receive Date: 20180927
  Receipt Date: 20180927
  Transmission Date: 20181010
  Serious: Yes (Other)
  Sender: FDA-Public Use
  Company Number: IT-AUROBINDO-AUR-APL-2018-047365

PATIENT
  Age: 63 Year
  Sex: Male

DRUGS (5)
  1. METFORMIN [Suspect]
     Active Substance: METFORMIN HYDROCHLORIDE
     Dosage: UNK
     Route: 065
  2. DEXAMETHASONE. [Concomitant]
     Active Substance: DEXAMETHASONE
     Indication: HYPERCORTICOIDISM
     Dosage: 320 UG/L
     Route: 065
  3. METFORMIN [Suspect]
     Active Substance: METFORMIN HYDROCHLORIDE
     Indication: DIABETES MELLITUS
     Dosage: UNK
     Route: 065
  4. PASIREOTIDE. [Concomitant]
     Active Substance: PASIREOTIDE
     Indication: PITUITARY-DEPENDENT CUSHING^S SYNDROME
     Dosage: 0.6 MICROGRAM, TWO TIMES A DAY
     Route: 058
  5. PASIREOTIDE. [Concomitant]
     Active Substance: PASIREOTIDE
     Dosage: 0.3 MICROGRAM, TWO TIMES A DAY
     Route: 058

REACTIONS (1)
  - Diabetes mellitus inadequate control [Recovering/Resolving]
